FAERS Safety Report 7252988 (Version 5)
Quarter: 2012Q4

REPORT INFORMATION
  Report Type: 
  Country: CA (occurrence: CA)
  Receive Date: 20100122
  Receipt Date: 20121022
  Transmission Date: 20130627
  Serious: Yes (Hospitalization, Other)
  Sender: FDA-Public Use
  Company Number: PHHY2010CA01875

PATIENT
  Sex: Male

DRUGS (4)
  1. SANDOSTATIN LAR [Suspect]
     Indication: NEUROENDOCRINE TUMOUR
     Dosage: 20 mg,every 4 weeks
     Route: 030
     Dates: start: 20080111
  2. SANDOSTATIN LAR [Suspect]
     Dosage: 30 mg,every 4 weeks
     Route: 030
  3. SANDOSTATIN LAR [Suspect]
     Dosage: 20 mg,every 4 weeks
     Route: 030
  4. CHEMOTHERAPEUTICS NOS [Suspect]
     Dosage: UNK UKN, UNK

REACTIONS (4)
  - Fatigue [Unknown]
  - Asthenia [Unknown]
  - Headache [Unknown]
  - Blood pressure increased [Unknown]
